FAERS Safety Report 11208184 (Version 5)
Quarter: 2015Q3

REPORT INFORMATION
  Report Type: Report from Study
  Country: HU (occurrence: HU)
  Receive Date: 20150622
  Receipt Date: 20150729
  Transmission Date: 20151125
  Serious: Yes (Hospitalization, Other)
  Sender: FDA-Public Use
  Company Number: HU-GILEAD-2015-0159402

PATIENT
  Age: 47 Year
  Sex: Female

DRUGS (3)
  1. IDELALISIB [Suspect]
     Active Substance: IDELALISIB
     Indication: CHRONIC LYMPHOCYTIC LEUKAEMIA
     Dosage: 100 MG, BID
     Route: 048
     Dates: start: 20140227, end: 20150617
  2. RITUXIMAB [Suspect]
     Active Substance: RITUXIMAB
     Indication: CHRONIC LYMPHOCYTIC LEUKAEMIA
     Dosage: 656 MG, CYCLICAL
     Route: 042
     Dates: start: 20140227, end: 20140722
  3. BENDAMUSTINE [Suspect]
     Active Substance: BENDAMUSTINE
     Indication: CHRONIC LYMPHOCYTIC LEUKAEMIA
     Dosage: 123 MG, CYCLICAL
     Route: 042
     Dates: start: 20140227, end: 20140722

REACTIONS (8)
  - Splenomegaly [None]
  - Lymphadenopathy [None]
  - Oedematous pancreatitis [None]
  - Pancreatitis [Recovered/Resolved with Sequelae]
  - Hypocalcaemia [None]
  - Gallbladder polyp [None]
  - Pancreatitis acute [None]
  - Diarrhoea [None]

NARRATIVE: CASE EVENT DATE: 20150607
